FAERS Safety Report 4389967-8 (Version None)
Quarter: 2004Q2

REPORT INFORMATION
  Report Type: 
  Country: None (occurrence: None)
  Receive Date: 20040630
  Receipt Date: 20040614
  Transmission Date: 20050107
  Serious: Yes (Hospitalization)
  Sender: FDA-Public Use
  Company Number: 207408

PATIENT
  Age: 66 Year
  Sex: Female
  Weight: 75 kg

DRUGS (8)
  1. HERCEPTIN [Suspect]
     Indication: BREAST CANCER METASTATIC
     Dosage: SEE IMAGE
     Route: 042
     Dates: start: 20040423, end: 20040423
  2. HERCEPTIN [Suspect]
     Indication: BREAST CANCER METASTATIC
     Dosage: SEE IMAGE
     Route: 042
     Dates: start: 20040507
  3. CAPECITABINE(CAPECITABINE) [Suspect]
     Indication: BREAST CANCER METASTATIC
     Dosage: SEE IMAGE
     Route: 048
     Dates: start: 20040424, end: 20040430
  4. CAPECITABINE(CAPECITABINE) [Suspect]
     Indication: BREAST CANCER METASTATIC
     Dosage: SEE IMAGE
     Route: 048
     Dates: start: 20040514, end: 20040519
  5. CAPECITABINE(CAPECITABINE) [Suspect]
     Indication: BREAST CANCER METASTATIC
     Dosage: SEE IMAGE
     Route: 048
     Dates: start: 20040604
  6. DOCETAXEL(DOCETAXEL) [Suspect]
     Indication: BREAST CANCER METASTATIC
     Dosage: 100 MG, Q3W, INTRAVENOUS
     Route: 042
     Dates: start: 20040423
  7. FOSINOPRIL (FOSINOPRIL SODIUM) [Concomitant]
  8. OMEPRAZOLE [Concomitant]

REACTIONS (3)
  - COUGH [None]
  - FEBRILE NEUTROPENIA [None]
  - LETHARGY [None]
